FAERS Safety Report 7328148-2 (Version None)
Quarter: 2011Q1

REPORT INFORMATION
  Report Type: 
  Country: None (occurrence: None)
  Receive Date: 20110303
  Receipt Date: 20110218
  Transmission Date: 20110831
  Serious: Yes (Hospitalization, Other)
  Sender: FDA-Public Use
  Company Number: PHHY2011US14203

PATIENT
  Sex: Female
  Weight: 160 kg

DRUGS (1)
  1. EXJADE [Suspect]
     Indication: NEOPLASM
     Dosage: 1500 MG, QD
     Route: 048
     Dates: start: 20100901, end: 20101101

REACTIONS (2)
  - ENTEROVESICAL FISTULA [None]
  - URINARY TRACT INFECTION [None]
